FAERS Safety Report 7333555-8 (Version None)
Quarter: 2011Q1

REPORT INFORMATION
  Report Type: 
  Country: None (occurrence: None)
  Receive Date: 20110304
  Receipt Date: 20110208
  Transmission Date: 20110831
  Serious: No
  Sender: FDA-Public Use
  Company Number: US-B.I. PHARMACEUTICALS,INC./RIDGEFIELD-2011-BP-05095BP

PATIENT
  Sex: Female

DRUGS (10)
  1. METANX [Concomitant]
     Route: 048
  2. FLONASE [Concomitant]
     Indication: MULTIPLE ALLERGIES
     Route: 048
  3. PRADAXA [Suspect]
     Indication: ATRIAL FIBRILLATION
     Dosage: 300 MG
     Route: 048
     Dates: start: 20110129
  4. ADVAIR DISKUS 100/50 [Concomitant]
     Indication: ASTHMA
     Route: 048
  5. FLUOXETINE [Concomitant]
     Indication: DEPRESSION
     Dosage: 40 MG
     Route: 048
  6. DIGOXIN [Concomitant]
     Indication: ATRIAL FIBRILLATION
     Dosage: 0.25 MG
     Route: 048
  7. MOBIC [Concomitant]
     Indication: ARTHRITIS
     Dosage: 15 MG
     Route: 048
  8. PRILOSEC [Concomitant]
     Indication: PROPHYLAXIS
     Route: 048
  9. METOPROLOL SUCCINATE EXTENDED RELEASE [Concomitant]
     Indication: HYPERTENSION
     Dosage: 100 MG
     Route: 048
  10. CARDIZEM [Concomitant]
     Indication: ATRIAL FIBRILLATION
     Dosage: 180 MG
     Route: 048

REACTIONS (3)
  - LOSS OF CONSCIOUSNESS [None]
  - FALL [None]
  - DIZZINESS [None]
